FAERS Safety Report 7738305-9 (Version None)
Quarter: 2011Q3

REPORT INFORMATION
  Report Type: 
  Country: None (occurrence: None)
  Receive Date: 20110908
  Receipt Date: 20110906
  Transmission Date: 20111222
  Serious: Yes (Life-Threatening, Hospitalization)
  Sender: FDA-Public Use
  Company Number: NO-B.I. PHARMACEUTICALS,INC./RIDGEFIELD-2011-SW-00340NO

PATIENT
  Sex: Female

DRUGS (2)
  1. AMLODIPINE [Concomitant]
     Indication: HYPERTENSION
  2. PRADAXA [Suspect]
     Indication: PULMONARY EMBOLISM
     Dosage: 220 MG
     Route: 048
     Dates: start: 20110513, end: 20110526

REACTIONS (1)
  - GASTROINTESTINAL HAEMORRHAGE [None]
